FAERS Safety Report 7534408-2 (Version None)
Quarter: 2011Q2

REPORT INFORMATION
  Report Type: 
  Country: None (occurrence: None)
  Receive Date: 20110608
  Receipt Date: 20110525
  Transmission Date: 20111010
  Serious: No
  Sender: FDA-Public Use
  Company Number: US-AMGEN-USASP2011027178

PATIENT
  Age: 74 Year
  Sex: Female

DRUGS (8)
  1. DYAZIDE [Concomitant]
  2. LEVOXYL [Concomitant]
  3. TRICOR [Concomitant]
  4. FISH OIL [Concomitant]
  5. PROLIA [Suspect]
     Indication: OSTEOPOROSIS POSTMENOPAUSAL
     Dosage: 60 MG, Q6MO
     Dates: start: 20110101
  6. ASPIRIN [Concomitant]
  7. CO Q10 [Concomitant]
  8. CALCIUM CARBONATE [Concomitant]

REACTIONS (3)
  - INJECTION SITE PRURITUS [None]
  - INJECTION SITE SWELLING [None]
  - INJECTION SITE URTICARIA [None]
